FAERS Safety Report 7911702-4 (Version None)
Quarter: 2011Q4

REPORT INFORMATION
  Report Type: 
  Country: None (occurrence: None)
  Receive Date: 20111114
  Receipt Date: 20111011
  Transmission Date: 20120403
  Serious: Yes (Hospitalization)
  Sender: FDA-Public Use
  Company Number: AT-ROCHE-790632

PATIENT
  Sex: Female
  Weight: 83 kg

DRUGS (7)
  1. AVASTIN [Suspect]
     Indication: BREAST CANCER
     Dosage: FORM: VIALS LAST DOSE PRIOR TO SAE: 02 DECEMBER 2010, TOTAL DOSE: 4802 MMG
     Route: 042
     Dates: start: 20100311, end: 20101202
  2. FLUOROURACIL [Suspect]
     Indication: BREAST CANCER
     Dosage: FORM: VIALS, DOSE: 600 MG/M2, TOTAL DOSE: 3240 MG LAST DOSE PRIOR TO SAE: 22 JUNE 2010
     Route: 042
     Dates: start: 20100514, end: 20100622
  3. DOCETAXEL [Suspect]
     Indication: BREAST CANCER
     Dosage: FORM: VIALS, DOSE; 100 MG/M2, TOTAL DOSE: 535 MG. LAST DOSE PRIOR TO SAE: 22 APRIL 2010
     Route: 042
     Dates: start: 20100311, end: 20100422
  4. HERCEPTIN [Suspect]
     Indication: BREAST CANCER
     Dosage: FORM: VIALS LAST DOSE PRIOR TO SAE: 07 APRIL 2011, DOSE  8 MG/KG AND 6 MG/KG, TOTAL DOSE: 3753 MG
     Route: 042
  5. EPIRUBICIN HYDROCHLORIDE [Suspect]
     Indication: BREAST CANCER
     Dosage: FORM: VIALS,DOSE: 90 MG/M2, TOTAL DOSE: 486 MG LAST DOSE PRIOR TO SAE: 02 JUNE 2010
     Route: 042
     Dates: start: 20100514, end: 20100622
  6. CYCLOPHOSPHAMIDE [Suspect]
     Indication: BREAST CANCER
     Dosage: DOSE: 600 MG/M2, TOTAL DOSE: 3246 MG FORM: VIALS LAST DOSE PRIOR TO SAE: 22 JUNE 2010
     Route: 042
     Dates: start: 20100514, end: 20100622
  7. IVOR [Concomitant]
     Dosage: REPORTED AS: IVOR 3500 FREQUENCY: IE
     Dates: start: 20110414, end: 20110414

REACTIONS (1)
  - IMPAIRED HEALING [None]
